FAERS Safety Report 12899565 (Version 1)
Quarter: 2016Q4

REPORT INFORMATION
  Report Type: Spontaneous
  Country: US (occurrence: US)
  Receive Date: 20161030
  Receipt Date: 20161030
  Transmission Date: 20170207
  Serious: Yes (Other)
  Sender: FDA-Public Use
  Company Number: None

PATIENT
  Age: 71 Year
  Sex: Male
  Weight: 81 kg

DRUGS (3)
  1. KLONOPIN [Concomitant]
     Active Substance: CLONAZEPAM
  2. TAMSULOSIN HCL 0.4 MG CAPSULE [Suspect]
     Active Substance: TAMSULOSIN HYDROCHLORIDE
     Indication: BENIGN PROSTATIC HYPERPLASIA
     Dosage: ?          QUANTITY:1 CAPSULE(S);?
     Route: 048
     Dates: start: 20160802, end: 20160915
  3. WELLBUTRIN [Concomitant]
     Active Substance: BUPROPION HYDROCHLORIDE

REACTIONS (12)
  - Panic attack [None]
  - Impatience [None]
  - Agitation [None]
  - Sleep disorder [None]
  - Anger [None]
  - Anxiety [None]
  - Tachyphrenia [None]
  - Disturbance in attention [None]
  - Depression [None]
  - Irritability [None]
  - Restlessness [None]
  - Insomnia [None]

NARRATIVE: CASE EVENT DATE: 20160915
